FAERS Safety Report 22925001 (Version 3)
Quarter: 2023Q4

REPORT INFORMATION
  Report Type: Spontaneous
  Country: US (occurrence: US)
  Receive Date: 20230908
  Receipt Date: 20231215
  Transmission Date: 20240109
  Serious: Yes (Other)
  Sender: FDA-Public Use
  Company Number: US-PFIZER INC-202300295045

PATIENT
  Age: 71 Year
  Sex: Female
  Weight: 58.503 kg

DRUGS (4)
  1. IBRANCE [Suspect]
     Active Substance: PALBOCICLIB
     Indication: Bone cancer
     Dosage: ONCE A DAY FOR 21 DAYS OFF 7 DAYS
     Dates: start: 2019
  2. IBRANCE [Suspect]
     Active Substance: PALBOCICLIB
     Indication: Breast cancer stage IV
  3. LETROZOLE [Suspect]
     Active Substance: LETROZOLE
     Indication: Bone cancer
     Dosage: 2.5 MG, 1X/DAY
     Dates: start: 2019
  4. LETROZOLE [Suspect]
     Active Substance: LETROZOLE
     Indication: Breast cancer stage IV

REACTIONS (3)
  - Dysstasia [Recovered/Resolved]
  - Visual impairment [Recovered/Resolved]
  - Dry eye [Recovered/Resolved]

NARRATIVE: CASE EVENT DATE: 20190101
